FAERS Safety Report 8407541-0 (Version None)
Quarter: 2012Q2

REPORT INFORMATION
  Report Type: 
  Country: None (occurrence: None)
  Receive Date: 20120529
  Receipt Date: 19940121
  Transmission Date: 20120825
  Serious: Yes (Other)
  Sender: FDA-Public Use
  Company Number: 002238

PATIENT
  Age: 87 Year
  Sex: Male

DRUGS (2)
  1. PLETAL [Suspect]
     Dosage: 200 MG, DAILY DOSE, ORAL
     Route: 048
     Dates: start: 19931020, end: 19940113
  2. PRANOPROFEN (PRANOPROFEN) [Suspect]
     Dosage: 225 MG,
     Dates: start: 19931227, end: 19940113

REACTIONS (9)
  - PO2 DECREASED [None]
  - DIARRHOEA [None]
  - GENERALISED ERYTHEMA [None]
  - SENILE DEMENTIA [None]
  - WHITE BLOOD CELL COUNT DECREASED [None]
  - VOMITING [None]
  - PLATELET COUNT DECREASED [None]
  - CHOKING SENSATION [None]
  - ANAPHYLACTOID REACTION [None]
